FAERS Safety Report 7811139-2 (Version None)
Quarter: 2011Q4

REPORT INFORMATION
  Report Type: 
  Country: None (occurrence: None)
  Receive Date: 20111013
  Receipt Date: 20111008
  Transmission Date: 20120403
  Serious: Yes (Death, Hospitalization)
  Sender: FDA-Public Use
  Company Number: CN-ASTELLAS-2011US006609

PATIENT
  Sex: Female

DRUGS (1)
  1. TARCEVA [Suspect]
     Indication: NON-SMALL CELL LUNG CANCER
     Dosage: 150 MG, UID/QD
     Route: 048
     Dates: start: 20110811, end: 20110919

REACTIONS (4)
  - OLIGURIA [None]
  - WEIGHT DECREASED [None]
  - NON-SMALL CELL LUNG CANCER [None]
  - DIARRHOEA [None]
